FAERS Safety Report 8315252-5 (Version None)
Quarter: 2012Q2

REPORT INFORMATION
  Report Type: 
  Country: None (occurrence: None)
  Receive Date: 20120426
  Receipt Date: 20120423
  Transmission Date: 20120825
  Serious: Yes (Hospitalization, Other)
  Sender: FDA-Public Use
  Company Number: PHHY2011CA73112

PATIENT
  Sex: Female

DRUGS (5)
  1. ZOLEDRONOC ACID [Suspect]
     Indication: OSTEOPOROSIS
     Dosage: UNK UKN, UNK
     Route: 042
     Dates: start: 20100909
  2. ASPIRIN [Concomitant]
     Dosage: 80 MG, UNK
     Route: 048
  3. ESTRACE [Concomitant]
     Dosage: 1 MG, UNK
  4. PROMETRIUM [Concomitant]
     Dosage: 100 MG, UNK
     Route: 048
  5. CRESTOR [Concomitant]
     Dosage: 10 MG, UNK
     Route: 048

REACTIONS (4)
  - ABDOMINAL PAIN UPPER [None]
  - MUSCULOSKELETAL STIFFNESS [None]
  - ENDOMETRIAL CANCER [None]
  - RESPIRATORY DISORDER [None]
